FAERS Safety Report 5444554-5 (Version None)
Quarter: 2007Q3

REPORT INFORMATION
  Report Type: 
  Country: None (occurrence: None)
  Receive Date: 20070906
  Receipt Date: 20070828
  Transmission Date: 20080115
  Serious: Yes (Hospitalization, Other)
  Sender: FDA-Public Use
  Company Number: US-AVENTIS-200712620US

PATIENT
  Sex: Female
  Weight: 72.7 kg

DRUGS (8)
  1. LANTUS [Suspect]
     Dosage: DOSE: 34-40 UNITS
     Route: 051
     Dates: start: 20060901
  2. COREG [Suspect]
     Indication: HYPERTENSION
     Dosage: DOSE: UNK
     Dates: start: 20070412, end: 20070412
  3. MAVIK [Concomitant]
     Indication: HYPERTENSION
  4. NOVOLOG [Concomitant]
     Dosage: DOSE: SLIDING SCALE
  5. ASPIRIN [Concomitant]
  6. THALIDOMIDE [Concomitant]
     Indication: MULTIPLE MYELOMA
     Dosage: DOSE: UNK
  7. TOPROL-XL [Concomitant]
  8. PRAVACHOL [Concomitant]

REACTIONS (6)
  - BLOOD GLUCOSE INCREASED [None]
  - DEPRESSED LEVEL OF CONSCIOUSNESS [None]
  - DRUG INTERACTION [None]
  - FATIGUE [None]
  - HYPOGLYCAEMIA [None]
  - UNRESPONSIVE TO STIMULI [None]
